FAERS Safety Report 5017855-2 (Version None)
Quarter: 2006Q2

REPORT INFORMATION
  Report Type: 
  Country: None (occurrence: None)
  Receive Date: 20060605
  Receipt Date: 20060525
  Transmission Date: 20061013
  Serious: Yes (Death, Other)
  Sender: FDA-Public Use
  Company Number: IT-AVENTIS-200615685GDDC

PATIENT

DRUGS (5)
  1. CISPLATIN [Suspect]
     Indication: GASTRIC CANCER
     Route: 042
  2. FLUOROURACIL [Suspect]
     Indication: GASTRIC CANCER
     Dosage: DOSE: 400 MG/M2 BOLUS, 600 MG/M2 CONT INFUSION
     Route: 042
  3. EPIRUBICIN [Suspect]
     Indication: GASTRIC CANCER
     Route: 042
  4. LEUCOVORIN CALCIUM [Suspect]
     Indication: GASTRIC CANCER
     Route: 042
  5. NEUPOGEN [Suspect]
     Dosage: DOSE: 5 UG/KG DAYS 6, 8, 10, 12
     Route: 042

REACTIONS (15)
  - ANAEMIA [None]
  - ASTHENIA [None]
  - ATRIAL FIBRILLATION [None]
  - CARDIOTOXICITY [None]
  - CAVERNOUS SINUS THROMBOSIS [None]
  - CEREBRAL ISCHAEMIA [None]
  - FEBRILE NEUTROPENIA [None]
  - MUCOSAL INFLAMMATION [None]
  - MYOCARDIAL INFARCTION [None]
  - NEUROTOXICITY [None]
  - NEUTROPENIA [None]
  - THROMBOCYTOPENIA [None]
  - THROMBOSIS [None]
  - TRANSIENT ISCHAEMIC ATTACK [None]
  - VOMITING [None]
